FAERS Safety Report 8316846-3 (Version None)
Quarter: 2012Q2

REPORT INFORMATION
  Report Type: 
  Country: None (occurrence: None)
  Receive Date: 20120425
  Receipt Date: 20120416
  Transmission Date: 20120825
  Serious: Yes (Other)
  Sender: FDA-Public Use
  Company Number: 2012SP019797

PATIENT
  Age: 55 Year
  Sex: Male

DRUGS (2)
  1. VICTRELIS [Suspect]
     Indication: HEPATITIS C
     Dosage: 800 MG;TID;PO
     Route: 048
     Dates: start: 20120221, end: 20120401
  2. PEGINTERFERON ALFA-2B [Suspect]
     Indication: HEPATITIS C
     Dosage: 150 MCG;QW;IM
     Route: 030

REACTIONS (7)
  - CHEST DISCOMFORT [None]
  - URINE OUTPUT INCREASED [None]
  - INFLUENZA LIKE ILLNESS [None]
  - SKIN ULCER [None]
  - DYSPNOEA [None]
  - RENAL PAIN [None]
  - NAIL DISORDER [None]
